FAERS Safety Report 7345124-4 (Version None)
Quarter: 2011Q1

REPORT INFORMATION
  Report Type: 
  Country: None (occurrence: None)
  Receive Date: 20110310
  Receipt Date: 20110228
  Transmission Date: 20110831
  Serious: Yes (Hospitalization)
  Sender: FDA-Public Use
  Company Number: SV-ELI_LILLY_AND_COMPANY-SV201103000231

PATIENT
  Age: 43 Year
  Sex: Male

DRUGS (2)
  1. CYMBALTA [Suspect]
     Indication: FIBROMYALGIA
     Dosage: 30 MG, DAILY (1/D)
     Dates: start: 20110126, end: 20110127
  2. LEVOTHYROXINE [Concomitant]

REACTIONS (3)
  - APHAGIA [None]
  - VOMITING [None]
  - NAUSEA [None]
